FAERS Safety Report 16899894 (Version 1)
Quarter: 2019Q4

REPORT INFORMATION
  Report Type: Spontaneous
  Country: US (occurrence: US)
  Receive Date: 20191009
  Receipt Date: 20191009
  Transmission Date: 20200122
  Serious: Yes (Hospitalization)
  Sender: FDA-Public Use
  Company Number: US-PROCTER_AND_GAMBLE-GS19105433

PATIENT
  Age: 60 Year
  Sex: Female

DRUGS (6)
  1. OLAYFEMFACCLNSGTOTALEFFSCLNSGWHIPPOLISHINGCREMECLEANSERNORSCNT150ML [Suspect]
     Active Substance: COSMETICS
     Dosage: A SQUIRT ONCE A DAY
     Route: 061
     Dates: end: 20190927
  2. OLAY REGENERIST UV DEFENSE REGENERATING SPF 15 [Suspect]
     Active Substance: AVOBENZONE\ENSULIZOLE\HOMOSALATE\OCTISALATE\OCTOCRYLENE
     Dosage: A SQUIRT ONCE A DAY
     Route: 061
     Dates: end: 20190927
  3. OLAYFEMFACCLNSGCLNSGINFUSIONCRUSHEDGINGERFACWASHNORSCNT150ML [Suspect]
     Active Substance: COSMETICS
     Dosage: A SQUIRT ONCE A DAY
     Route: 061
     Dates: end: 20190927
  4. OLAY SPF/UV PROTECTION NOS [Suspect]
     Active Substance: AVOBENZONE\HOMOSALATE\OCTINOXATE\OCTISALATE\OCTOCRYLENE\OXYBENZONE\TITANIUM DIOXIDE\ZINC OXIDE
     Dosage: A SQUIRT ONCE A DAY
     Route: 061
     Dates: end: 20190927
  5. OLAYFEMFACCLNSGMSKSFRESHRESETCLAYSTICKNORSCNT48G [Suspect]
     Active Substance: COSMETICS
     Dosage: A SQUIRT ONCE A DAY
     Route: 061
     Dates: end: 20190927
  6. OLAYFEMFACONDTRTTOTALEFFSTRANSFORMINGEYECRMNORNONUV13ML [Suspect]
     Active Substance: COSMETICS
     Dosage: A SQUIRT ONCE A DAY
     Route: 061
     Dates: end: 20190927

REACTIONS (5)
  - Lip pain [Unknown]
  - Rash pustular [Recovering/Resolving]
  - Rash macular [Recovering/Resolving]
  - Lip swelling [Unknown]
  - Skin burning sensation [Recovering/Resolving]
